FAERS Safety Report 4693664-9 (Version None)
Quarter: 2005Q2

REPORT INFORMATION
  Report Type: 
  Country: None (occurrence: None)
  Receive Date: 20050617
  Receipt Date: 20050411
  Transmission Date: 20051028
  Serious: Yes (Hospitalization)
  Sender: FDA-Public Use
  Company Number: 2005AP02282

PATIENT
  Age: 9929 Day
  Sex: Female
  Weight: 60 kg

DRUGS (8)
  1. IRESSA [Suspect]
     Indication: NON-SMALL CELL LUNG CANCER
     Route: 048
     Dates: start: 20050307, end: 20050406
  2. IRESSA [Suspect]
     Route: 048
  3. RADIATION THERAPY [Concomitant]
     Indication: RADIOTHERAPY TO BRAIN
     Dosage: 30 GY
     Dates: start: 20050127, end: 20050217
  4. GASTER [Concomitant]
     Indication: UPPER GASTROINTESTINAL HAEMORRHAGE
     Route: 048
  5. DECADRON [Concomitant]
     Indication: BRAIN OEDEMA
     Route: 048
  6. ADALAT [Concomitant]
     Indication: HYPERTENSION
     Route: 048
  7. DIOVAN [Concomitant]
     Indication: HYPERTENSION
     Route: 048
  8. NOVOLIN R [Concomitant]
     Indication: DIABETES MELLITUS
     Route: 058

REACTIONS (2)
  - NAUSEA [None]
  - PYREXIA [None]
